FAERS Safety Report 4904372-0 (Version None)
Quarter: 2006Q1

REPORT INFORMATION
  Report Type: 
  Country: None (occurrence: None)
  Receive Date: 20060208
  Receipt Date: 20050829
  Transmission Date: 20060701
  Serious: No
  Sender: FDA-Public Use
  Company Number: US-GLAXOSMITHKLINE-A0572197A

PATIENT
  Age: 77 Year
  Sex: Male

DRUGS (7)
  1. PAXIL [Suspect]
     Indication: PANIC DISORDER
     Dosage: 20MG PER DAY
     Route: 048
     Dates: start: 20000101, end: 20050817
  2. CYMBALTA [Suspect]
     Dosage: 30MG PER DAY
     Route: 048
     Dates: start: 20050817
  3. PLAVIX [Concomitant]
  4. COREG [Concomitant]
  5. ZETIA [Concomitant]
  6. LOTREL [Concomitant]
  7. LESCOL [Concomitant]

REACTIONS (3)
  - BLOOD PRESSURE ABNORMAL [None]
  - DRUG WITHDRAWAL SYNDROME [None]
  - DYSPNOEA [None]
